FAERS Safety Report 6154045-4 (Version None)
Quarter: 2009Q2

REPORT INFORMATION
  Report Type: 
  Country: None (occurrence: None)
  Receive Date: 20090414
  Receipt Date: 20090410
  Transmission Date: 20091009
  Serious: Yes (Hospitalization)
  Sender: FDA-Public Use
  Company Number: US-WYE-H08922809

PATIENT
  Age: 38 Year
  Sex: Male

DRUGS (3)
  1. ZOSYN [Suspect]
     Indication: ABDOMINAL PAIN UPPER
     Dosage: ONE DOSE
     Route: 042
  2. ZOSYN [Suspect]
     Indication: VOMITING
  3. ZOSYN [Suspect]
     Indication: INFECTION

REACTIONS (9)
  - CONDITION AGGRAVATED [None]
  - DIZZINESS [None]
  - EYE SWELLING [None]
  - HEPATIC ENZYME INCREASED [None]
  - HYPERSENSITIVITY [None]
  - PANCREATITIS [None]
  - PHARYNGEAL OEDEMA [None]
  - PRURITUS [None]
  - RASH MACULAR [None]
